FAERS Safety Report 4422079-3 (Version None)
Quarter: 2004Q3

REPORT INFORMATION
  Report Type: 
  Country: None (occurrence: None)
  Receive Date: 20040805
  Receipt Date: 20040728
  Transmission Date: 20050211
  Serious: Yes (Hospitalization)
  Sender: FDA-Public Use
  Company Number: HQWYE768603AUG04

PATIENT
  Sex: Female

DRUGS (2)
  1. PREMARIN [Suspect]
  2. MEDROGESTERONE ACETATE (MEDROXYPROGESTERONE ACETATE) [Suspect]

REACTIONS (2)
  - PULMONARY EMBOLISM [None]
  - SYSTEMIC LUPUS ERYTHEMATOSUS [None]
